FAERS Safety Report 5782286-4 (Version None)
Quarter: 2008Q2

REPORT INFORMATION
  Report Type: 
  Country: None (occurrence: None)
  Receive Date: 20080623
  Receipt Date: 20080619
  Transmission Date: 20081010
  Serious: Yes (Hospitalization)
  Sender: FDA-Public Use
  Company Number: US-BOEHRINGER INGELHEIM GMBH, GERMANY-2008-BP-09576BP

PATIENT
  Age: 18 Year
  Sex: Female

DRUGS (2)
  1. APTIVUS/RITONAVIR CAPSULES [Suspect]
     Indication: HIV INFECTION
  2. TRUVADA [Concomitant]
     Indication: HIV INFECTION

REACTIONS (4)
  - ARTHRALGIA [None]
  - IMMUNE RECONSTITUTION SYNDROME [None]
  - JOINT SWELLING [None]
  - OSTEOMYELITIS [None]
